FAERS Safety Report 9258399 (Version 1)
Quarter: 2013Q1

REPORT INFORMATION
  Report Type: Spontaneous
  Country: US (occurrence: None)
  Receive Date: 20121212
  Receipt Date: 20121212
  Transmission Date: 20140127
  Serious: No
  Sender: FDA-Public Use
  Company Number: 1210USA011782

PATIENT
  Age: 55 Year
  Sex: Male

DRUGS (3)
  1. PEGINTRON [Suspect]
     Indication: CHRONIC HEPATITIS C
     Route: 050
     Dates: start: 20120808
  2. VICTRELIS [Suspect]
     Route: 048
     Dates: start: 20120905
  3. RIBASPHERE [Suspect]

REACTIONS (2)
  - Depression [None]
  - Pruritus [None]
